FAERS Safety Report 6365843-6 (Version None)
Quarter: 2009Q3

REPORT INFORMATION
  Report Type: 
  Country: None (occurrence: None)
  Receive Date: 20090919
  Receipt Date: 20090824
  Transmission Date: 20100115
  Serious: No
  Sender: FDA-Public Use
  Company Number: US-ABBOTT-09P-163-0593466-00

PATIENT
  Sex: Female
  Weight: 68.1 kg

DRUGS (3)
  1. HUMIRA [Suspect]
     Indication: CROHN'S DISEASE
     Dosage: 160 LOADING DOSE
     Dates: start: 20090807, end: 20090807
  2. HUMIRA [Suspect]
     Dates: start: 20090822
  3. PENTASA [Concomitant]
     Indication: CROHN'S DISEASE

REACTIONS (1)
  - DRUG DOSE OMISSION [None]
